FAERS Safety Report 6814348-4 (Version None)
Quarter: 2010Q3

REPORT INFORMATION
  Report Type: 
  Country: None (occurrence: None)
  Receive Date: 20100702
  Receipt Date: 20100628
  Transmission Date: 20110219
  Serious: Yes (Death, Hospitalization)
  Sender: FDA-Public Use
  Company Number: FR-SANOFI-AVENTIS-2010SA037350

PATIENT
  Age: 75 Year
  Sex: Male

DRUGS (13)
  1. LOVENOX [Suspect]
     Route: 058
     Dates: start: 20100525, end: 20100608
  2. INNOHEP /GFR/ [Suspect]
     Route: 058
     Dates: start: 20100512, end: 20100519
  3. AROMASIN [Concomitant]
     Route: 048
  4. ATHYMIL [Concomitant]
     Route: 048
  5. THERALENE [Concomitant]
     Route: 048
  6. THIOCOLCHICOSIDE [Concomitant]
     Route: 048
  7. TRANSIPEG /FRA/ [Concomitant]
     Route: 048
  8. DAFALGAN [Concomitant]
     Route: 065
  9. EFFERALGAN CODEINE [Concomitant]
     Route: 048
  10. LANSOYL [Concomitant]
     Route: 048
  11. OX BILE EXTRACT [Concomitant]
     Route: 054
  12. RIVOTRIL [Concomitant]
     Route: 048
  13. HALDOL [Concomitant]
     Route: 065
     Dates: end: 20100419

REACTIONS (1)
  - THROMBOCYTOPENIA [None]
